FAERS Safety Report 17011146 (Version 1)
Quarter: 2019Q4

REPORT INFORMATION
  Report Type: Spontaneous
  Country: US (occurrence: US)
  Receive Date: 20191108
  Receipt Date: 20191108
  Transmission Date: 20200122
  Serious: No
  Sender: FDA-Public Use
  Company Number: US-NOVOPROD-655257

PATIENT
  Age: 66 Year
  Sex: Female

DRUGS (2)
  1. LANTUS [Concomitant]
     Active Substance: INSULIN GLARGINE
     Indication: PRODUCT USED FOR UNKNOWN INDICATION
     Dosage: UNK
     Route: 058
  2. TRESIBA [Suspect]
     Active Substance: INSULIN DEGLUDEC
     Indication: TYPE 2 DIABETES MELLITUS
     Dosage: 25- 30 UNITS
     Route: 058
     Dates: start: 20181005, end: 201903

REACTIONS (5)
  - Peripheral swelling [Recovered/Resolved]
  - Blood glucose decreased [Unknown]
  - Rash [Recovered/Resolved]
  - Scar [Unknown]
  - Weight increased [Unknown]

NARRATIVE: CASE EVENT DATE: 20181005
